FAERS Safety Report 20443111 (Version 2)
Quarter: 2022Q2

REPORT INFORMATION
  Report Type: Spontaneous
  Country: CN (occurrence: CN)
  Receive Date: 20220208
  Receipt Date: 20220518
  Transmission Date: 20220721
  Serious: Yes (Other)
  Sender: FDA-Public Use
  Company Number: CN-002147023-NVSC2022CN020246

PATIENT
  Age: 55 Year
  Sex: Female

DRUGS (4)
  1. LUCENTIS [Suspect]
     Active Substance: RANIBIZUMAB
     Indication: Retinal haemorrhage
     Dosage: DEC 21ST (YEAR UNSPECIFIED) (1ST INJECTION)
     Route: 065
     Dates: start: 20211221
  2. LUCENTIS [Suspect]
     Active Substance: RANIBIZUMAB
     Indication: Macular oedema
     Dosage: JAN 25TH (YEAR UNSPECIFIED) (1ST INJECTION)
     Route: 065
     Dates: start: 20220125
  3. LUCENTIS [Suspect]
     Active Substance: RANIBIZUMAB
     Route: 065
     Dates: start: 202203
  4. LUCENTIS [Suspect]
     Active Substance: RANIBIZUMAB
     Route: 065
     Dates: start: 20220422

REACTIONS (13)
  - Retinal vein occlusion [Unknown]
  - Cataract [Unknown]
  - Ocular discomfort [Not Recovered/Not Resolved]
  - Diplopia [Not Recovered/Not Resolved]
  - Ocular hyperaemia [Not Recovered/Not Resolved]
  - Bruxism [Not Recovered/Not Resolved]
  - Drooling [Not Recovered/Not Resolved]
  - Headache [Not Recovered/Not Resolved]
  - Dry eye [Not Recovered/Not Resolved]
  - Eye pain [Not Recovered/Not Resolved]
  - Visual acuity reduced [Not Recovered/Not Resolved]
  - Drug ineffective [Unknown]
  - Condition aggravated [Not Recovered/Not Resolved]
